FAERS Safety Report 8963169 (Version 3)
Quarter: 2013Q3

REPORT INFORMATION
  Report Type: Spontaneous
  Country: IT (occurrence: DE)
  Receive Date: 20121213
  Receipt Date: 20130906
  Transmission Date: 20140515
  Serious: Yes (Hospitalization)
  Sender: FDA-Public Use
  Company Number: DE-FRI-1000040973

PATIENT
  Age: 46 Year
  Sex: Male
  Weight: 89 kg

DRUGS (8)
  1. NEBIVOLOL [Suspect]
     Indication: ATRIAL FIBRILLATION
     Dosage: 2.5 TO 10 TO 5 MG
     Route: 048
     Dates: start: 20120627, end: 2013
  2. XARELTO [Concomitant]
     Indication: ATRIAL FIBRILLATION
     Dosage: 15 MG
     Route: 048
     Dates: start: 20120703
  3. OLMESARTAN [Concomitant]
     Indication: HYPERTENSION
     Dosage: 20 MG
     Dates: start: 201207
  4. OMEPRAZOLE [Concomitant]
     Indication: HIATUS HERNIA
     Dosage: 40 MG
     Dates: start: 20120801
  5. DIGITALIS [Concomitant]
     Indication: ATRIAL FIBRILLATION
     Route: 042
     Dates: start: 20120626
  6. BETA BLOCKING AGENTS [Concomitant]
     Indication: ATRIAL FIBRILLATION
     Route: 042
     Dates: start: 20120626
  7. MAGNESIUM [Concomitant]
     Indication: ATRIAL FIBRILLATION
     Route: 042
     Dates: start: 20120626
  8. VERNAKALANT [Concomitant]
     Indication: ATRIAL FIBRILLATION
     Route: 042
     Dates: start: 20120626

REACTIONS (12)
  - Extrasystoles [Not Recovered/Not Resolved]
  - Palpitations [Not Recovered/Not Resolved]
  - Pain [Not Recovered/Not Resolved]
  - Disturbance in attention [Not Recovered/Not Resolved]
  - Depression [Not Recovered/Not Resolved]
  - Nausea [Not Recovered/Not Resolved]
  - Dizziness [Not Recovered/Not Resolved]
  - Hypertension [Not Recovered/Not Resolved]
  - Accommodation disorder [Not Recovered/Not Resolved]
  - Somnolence [Not Recovered/Not Resolved]
  - Panic attack [Not Recovered/Not Resolved]
  - Off label use [Not Recovered/Not Resolved]
